FAERS Safety Report 11810884 (Version 1)
Quarter: 2015Q4

REPORT INFORMATION
  Report Type: Spontaneous
  Country: IT (occurrence: IT)
  Receive Date: 20151208
  Receipt Date: 20151208
  Transmission Date: 20160305
  Serious: Yes (Hospitalization)
  Sender: FDA-Public Use
  Company Number: IT-SA-2015SA200263

PATIENT
  Age: 70 Year
  Sex: Male

DRUGS (9)
  1. CONGESCOR [Concomitant]
     Active Substance: BISOPROLOL
  2. LANSOX [Concomitant]
     Active Substance: LANSOPRAZOLE
  3. LOSFERRON [Concomitant]
  4. VASCOMAN [Concomitant]
     Active Substance: MANIDIPINE HYDROCHLORIDE
  5. CLOPIDOGREL BISULFATE. [Suspect]
     Active Substance: CLOPIDOGREL BISULFATE
     Indication: THROMBOSIS PROPHYLAXIS
     Route: 048
  6. ACETYLSALICYLIC ACID [Suspect]
     Active Substance: ASPIRIN
     Indication: THROMBOSIS PROPHYLAXIS
     Route: 048
     Dates: start: 20150101, end: 20151027
  7. SIMVASTATIN. [Concomitant]
     Active Substance: SIMVASTATIN
  8. LEVEMIR [Concomitant]
     Active Substance: INSULIN DETEMIR
  9. ZYLORIC [Concomitant]
     Active Substance: ALLOPURINOL

REACTIONS (2)
  - Haematuria [Unknown]
  - Strangury [Unknown]

NARRATIVE: CASE EVENT DATE: 20151027
